FAERS Safety Report 7744535-2 (Version None)
Quarter: 2011Q3

REPORT INFORMATION
  Report Type: 
  Country: None (occurrence: None)
  Receive Date: 20110912
  Receipt Date: 20110906
  Transmission Date: 20111222
  Serious: Yes (Other)
  Sender: FDA-Public Use
  Company Number: JP-ABBOTT-11P-087-0851481-00

PATIENT
  Age: 67 Year
  Sex: Female

DRUGS (1)
  1. CEFDINIR [Suspect]
     Indication: CYSTITIS
     Route: 048
     Dates: start: 20110826, end: 20110827

REACTIONS (2)
  - DYSPNOEA [None]
  - RASH [None]
